FAERS Safety Report 11692952 (Version 1)
Quarter: 2015Q4

REPORT INFORMATION
  Report Type: Report from Study
  Country: US (occurrence: US)
  Receive Date: 20151103
  Receipt Date: 20151103
  Transmission Date: 20160304
  Serious: Yes (Hospitalization)
  Sender: FDA-Public Use
  Company Number: US-BIOGENIDEC-2015BI144274

PATIENT
  Age: 65 Year
  Sex: Female

DRUGS (11)
  1. BUPROPION HCL ER (SMOKING DET) [Concomitant]
  2. CITALOPRAM HYDROBROMIDE. [Concomitant]
     Active Substance: CITALOPRAM HYDROBROMIDE
  3. ADVIL [Concomitant]
     Active Substance: IBUPROFEN
  4. GABAPENTIN. [Concomitant]
     Active Substance: GABAPENTIN
  5. ACYCLOVIR. [Concomitant]
     Active Substance: ACYCLOVIR
  6. FLUTICASONE PROPIONATE. [Concomitant]
     Active Substance: FLUTICASONE PROPIONATE
  7. TEMAZEPAM. [Concomitant]
     Active Substance: TEMAZEPAM
  8. ZOLPIDEM TARTRATE ER [Concomitant]
     Active Substance: ZOLPIDEM TARTRATE
  9. LAMOTRIGINE EXTENDED RELEASE [Concomitant]
     Active Substance: LAMOTRIGINE
  10. TRAZODONE HYDROCHLORIDE. [Concomitant]
     Active Substance: TRAZODONE HYDROCHLORIDE
  11. TECFIDERA [Suspect]
     Active Substance: DIMETHYL FUMARATE
     Indication: MULTIPLE SCLEROSIS
     Route: 048

REACTIONS (1)
  - Surgery [Unknown]
